FAERS Safety Report 4601371-3 (Version None)
Quarter: 2005Q1

REPORT INFORMATION
  Report Type: 
  Country: None (occurrence: None)
  Receive Date: 20050308
  Receipt Date: 20050302
  Transmission Date: 20050727
  Serious: Yes (Death, Other)
  Sender: FDA-Public Use
  Company Number: 200511669US

PATIENT
  Age: 66 Year
  Sex: Female

DRUGS (6)
  1. LANTUS [Suspect]
     Indication: DIABETES MELLITUS NON-INSULIN-DEPENDENT
     Dosage: DOSE: UNK
  2. DIGOXIN [Concomitant]
     Dosage: DOSE: UNK
  3. REGULAR INSULIN [Concomitant]
     Dosage: DOSE: SLIDING SCALE
  4. LEVAQUIN [Concomitant]
     Dosage: DOSE: UNK
  5. COUMADIN [Concomitant]
     Dosage: DOSE: UNK
  6. MORPHINE [Concomitant]
     Dosage: DOSE: UNK

REACTIONS (11)
  - BLOOD CALCIUM DECREASED [None]
  - BLOOD CHLORIDE DECREASED [None]
  - BLOOD CREATININE DECREASED [None]
  - BLOOD GLUCOSE INCREASED [None]
  - BLOOD IRON INCREASED [None]
  - BLOOD UREA INCREASED [None]
  - CHRONIC OBSTRUCTIVE PULMONARY DISEASE [None]
  - HAEMATOCRIT DECREASED [None]
  - HAEMOGLOBIN DECREASED [None]
  - HYPOGLYCAEMIA [None]
  - RESPIRATORY FAILURE [None]
